FAERS Safety Report 16780174 (Version 1)
Quarter: 2019Q3

REPORT INFORMATION
  Report Type: Spontaneous
  Country: EG (occurrence: EG)
  Receive Date: 20190906
  Receipt Date: 20190906
  Transmission Date: 20191005
  Serious: Yes (Hospitalization)
  Sender: FDA-Public Use
  Company Number: EG-HIKMA PHARMACEUTICALS USA INC.-EG-H14001-19-04800

PATIENT
  Age: 33 Year
  Sex: Male

DRUGS (4)
  1. SOLU-MEDROL [Suspect]
     Active Substance: METHYLPREDNISOLONE SODIUM SUCCINATE
     Indication: MANTLE CELL LYMPHOMA
     Route: 041
     Dates: start: 20180510, end: 20180514
  2. CYTOPLATIN [Suspect]
     Active Substance: CISPLATIN
     Indication: MANTLE CELL LYMPHOMA
     Route: 041
     Dates: start: 20180510, end: 20180514
  3. ETOPUL [Suspect]
     Active Substance: ETOPOSIDE
     Indication: MANTLE CELL LYMPHOMA
     Route: 041
     Dates: start: 20180510, end: 20180514
  4. TABINE [Concomitant]
     Active Substance: CYTARABINE
     Indication: MANTLE CELL LYMPHOMA
     Route: 041
     Dates: start: 20180510, end: 20180510

REACTIONS (3)
  - Pyrexia [Recovered/Resolved]
  - Diarrhoea [Recovered/Resolved]
  - Haemorrhage [Recovered/Resolved]

NARRATIVE: CASE EVENT DATE: 20180514
